FAERS Safety Report 4973102-9 (Version None)
Quarter: 2006Q2

REPORT INFORMATION
  Report Type: 
  Country: None (occurrence: None)
  Receive Date: 20060407
  Receipt Date: 20060328
  Transmission Date: 20061013
  Serious: Yes (Hospitalization)
  Sender: FDA-Public Use
  Company Number: HQWYE580729MAR06

PATIENT
  Age: 52 Year
  Sex: Female

DRUGS (18)
  1. TACROLIMUS [Suspect]
     Indication: PROPHYLAXIS AGAINST TRANSPLANT REJECTION
     Dosage: SEE IMAGE, ORAL
     Route: 048
     Dates: start: 20021120, end: 20050905
  2. TACROLIMUS [Suspect]
     Indication: PROPHYLAXIS AGAINST TRANSPLANT REJECTION
     Dosage: SEE IMAGE, ORAL
     Route: 048
     Dates: start: 20050906, end: 20060216
  3. TACROLIMUS [Suspect]
     Indication: PROPHYLAXIS AGAINST TRANSPLANT REJECTION
     Dosage: SEE IMAGE, ORAL
     Route: 048
     Dates: start: 20060217, end: 20060323
  4. ISOSORBIDE DINITRATE [Concomitant]
  5. MOLSIDOMINE (MOLSIDOMINE) [Concomitant]
  6. WARFARIN SODIUM [Concomitant]
  7. FAMOTIDINE [Concomitant]
  8. ALFACALCIDOL (ALFACALCIDOL) [Concomitant]
  9. CALCIUM CARBONATE (CALCIUM CARBONATE) [Concomitant]
  10. SODIUM CARBONATE (SODIUM BICARBONATE) [Concomitant]
  11. KALIUM (POTASSIUM CHLORIDE) [Concomitant]
  12. INSULINE NORDISK (INSULIN HUMAN) [Concomitant]
  13. ISOPHANE INSULIN [Concomitant]
  14. FUROSEMIDE [Concomitant]
  15. TELMISARTAN (TELMISARTAN) [Concomitant]
  16. ATORVASTATIN CALCIUM [Concomitant]
  17. MYCOPHENOLATE MOFETIL [Concomitant]
  18. PREDNISONE TAB [Concomitant]

REACTIONS (5)
  - ARTERIOSCLEROSIS [None]
  - CHOLELITHIASIS [None]
  - METASTASES TO LIVER [None]
  - MITRAL VALVE CALCIFICATION [None]
  - RENAL IMPAIRMENT [None]
